FAERS Safety Report 10614237 (Version 2)
Quarter: 2015Q1

REPORT INFORMATION
  Report Type: Spontaneous
  Country: US (occurrence: US)
  Receive Date: 20141128
  Receipt Date: 20150205
  Transmission Date: 20150720
  Serious: Yes (Death, Hospitalization)
  Sender: FDA-Public Use
  Company Number: US-ELI_LILLY_AND_COMPANY-US201411010338

PATIENT
  Age: 61 Year
  Sex: Male
  Weight: 149.1 kg

DRUGS (2)
  1. CYRAMZA [Suspect]
     Active Substance: RAMUCIRUMAB
     Indication: GASTROOESOPHAGEAL CANCER
     Dosage: 1224 MG, OTHER
     Route: 042
     Dates: start: 20140911, end: 20140925
  2. CYRAMZA [Suspect]
     Active Substance: RAMUCIRUMAB
     Indication: GASTRIC CANCER

REACTIONS (2)
  - Gastrooesophageal cancer [Fatal]
  - Dehydration [Unknown]

NARRATIVE: CASE EVENT DATE: 20141002
